FAERS Safety Report 9045974 (Version 1)
Quarter: 2013Q1

REPORT INFORMATION
  Report Type: Spontaneous
  Country: US (occurrence: US)
  Receive Date: 20130201
  Receipt Date: 20130201
  Transmission Date: 20140127
  Serious: No
  Sender: FDA-Public Use
  Company Number: US-009507513-1301USA012377

PATIENT
  Sex: Female

DRUGS (2)
  1. ASMANEX TWISTHALER [Suspect]
     Dosage: 2 DF, BID
     Route: 055
     Dates: start: 20121227
  2. ASMANEX TWISTHALER [Suspect]
     Dosage: 2 DF, BID
     Route: 055
     Dates: start: 20120124

REACTIONS (4)
  - Underdose [Unknown]
  - Product container issue [Unknown]
  - Product quality issue [Unknown]
  - No adverse event [Unknown]
